FAERS Safety Report 11159755 (Version 1)
Quarter: 2015Q2

REPORT INFORMATION
  Report Type: Spontaneous
  Country: US (occurrence: None)
  Receive Date: 20150602
  Receipt Date: 20150602
  Transmission Date: 20150821
  Serious: Yes (Disabling)
  Sender: FDA-Public Use
  Company Number: None

PATIENT
  Age: 58 Day
  Sex: Female
  Weight: 73.48 kg

DRUGS (9)
  1. COSAMIN ASU [Concomitant]
  2. PROBIOTIC [Concomitant]
     Active Substance: PROBIOTICS NOS
  3. D-MANNOSE [Concomitant]
  4. MULTI VITAMIN [Concomitant]
     Active Substance: VITAMINS
  5. VITAMIN D [Concomitant]
     Active Substance: CHOLECALCIFEROL
  6. AUBAGIO [Suspect]
     Active Substance: TERIFLUNOMIDE
     Indication: MULTIPLE SCLEROSIS
     Dosage: 1 PILL PER DAY  ONCE DAILY  TAKEN BY MOUTH
     Route: 048
     Dates: start: 20150527, end: 20150529
  7. VALSARTAN. [Concomitant]
     Active Substance: VALSARTAN
  8. INSTAFLEX [Concomitant]
     Active Substance: DIETARY SUPPLEMENT
  9. COQ10 [Concomitant]
     Active Substance: UBIDECARENONE

REACTIONS (17)
  - Gastrooesophageal reflux disease [None]
  - Middle insomnia [None]
  - Dysgeusia [None]
  - Pollakiuria [None]
  - Diarrhoea [None]
  - Blood pressure increased [None]
  - Abdominal pain [None]
  - Abdominal discomfort [None]
  - Abdominal pain upper [None]
  - Flatulence [None]
  - Sneezing [None]
  - Dyspepsia [None]
  - Gait disturbance [None]
  - Vomiting [None]
  - Erythema [None]
  - Asthenia [None]
  - Nausea [None]

NARRATIVE: CASE EVENT DATE: 20150529
